FAERS Safety Report 24734138 (Version 1)
Quarter: 2024Q4

REPORT INFORMATION
  Report Type: Spontaneous
  Country: GB (occurrence: GB)
  Receive Date: 20241214
  Receipt Date: 20241214
  Transmission Date: 20250115
  Serious: No
  Sender: ALKEM
  Company Number: None

PATIENT
  Age: 50 Year
  Sex: Female

DRUGS (15)
  1. MYCOPHENOLATE MOFETIL [Suspect]
     Active Substance: MYCOPHENOLATE MOFETIL
     Indication: Product used for unknown indication
     Dosage: 500 MILLIGRAM (500MG TABLETS, 500MG BD THEN INC TO 1G OM AND 500MG ON)
     Route: 065
  2. ACYCLOVIR [Concomitant]
     Active Substance: ACYCLOVIR
     Indication: Product used for unknown indication
     Dosage: 1 DOSAGE FORM, BID (ONE TO BE TAKEN TWICE A DAY AS DIRECTED)
     Route: 065
  3. ACYCLOVIR [Concomitant]
     Active Substance: ACYCLOVIR
     Dosage: 1 DOSAGE FORM, TID ONE TO BE TAKEN THREE TIMES A DAY)
     Route: 065
  4. CETIRIZINE [Concomitant]
     Active Substance: CETIRIZINE HYDROCHLORIDE
     Indication: Product used for unknown indication
     Dosage: 1 DOSAGE FORM, QD (ONE TO BE TAKEN DAILY)
     Route: 065
  5. DEXAMETHASONE [Concomitant]
     Active Substance: DEXAMETHASONE
     Indication: Product used for unknown indication
     Dosage: UNK
     Route: 065
  6. DORZOLAMIDE [Concomitant]
     Active Substance: DORZOLAMIDE
     Indication: Product used for unknown indication
     Dosage: 1 DROP, BID (BOTH EYES)
  7. ESTRADIOL [Concomitant]
     Active Substance: ESTRADIOL
     Indication: Product used for unknown indication
     Dosage: UNK, QD (2 PUMPS EVERY DAY ON ARM)
     Route: 065
  8. GABAPENTIN [Concomitant]
     Active Substance: GABAPENTIN
     Indication: Product used for unknown indication
     Dosage: 1 DOSAGE FORM (ONE TO BE TAKEN MORNING AND AFTERNOON AND 2 AT NIGHT)
     Route: 065
  9. HYLO [Concomitant]
     Indication: Product used for unknown indication
     Dosage: UNK, OD (NIGHT EYE OINTMENT PRESERVATIVE FREE, ONCE A DAY)
  10. Hyabak [Concomitant]
     Indication: Product used for unknown indication
     Dosage: 1 DROP (USE ONE DROP IN THE AFFECTED EYE(S) WHEN REQUIRED)
  11. LATANOPROST [Concomitant]
     Active Substance: LATANOPROST
     Indication: Product used for unknown indication
     Dosage: 1 DROP, HS (0.2ML UNIT DOSE PRESERVATIVE FREE, ONE DROP TO BE USED AT NIGHT IN THE RIGHT EYE)
  12. MINIMS DEXAMETHASONE [Concomitant]
     Indication: Product used for unknown indication
     Dosage: UNK, BID (0.5ML UNIT DOSE TWICE DAILY TO RIGHT EYE)
     Route: 065
  13. ALBUTEROL [Concomitant]
     Active Substance: ALBUTEROL
     Indication: Product used for unknown indication
     Dosage: UNK (CFC FREE, 2 PUFFS 4 HOURLY AS REQUIRED)
  14. FLUTICASONE PROPIONATE\SALMETEROL XINAFOATE [Concomitant]
     Active Substance: FLUTICASONE PROPIONATE\SALMETEROL XINAFOATE
     Indication: Product used for unknown indication
     Dosage: 1 DOSAGE FORM, BID (25 MICROGRAMS/DOSE / 250MICROGRAMS/DOSE) ONE PUFF TWICE A DAY
     Route: 065
  15. TIMOLOL [Concomitant]
     Active Substance: TIMOLOL\TIMOLOL MALEATE
     Indication: Product used for unknown indication
     Dosage: 1 DROP, BID (PRESERVATIVE FREE, ONE DROP TO BE USED TWICE A DAY IN BOTH EYES)

REACTIONS (1)
  - Epistaxis [Recovered/Resolved]
